FAERS Safety Report 14340025 (Version 1)
Quarter: 2017Q4

REPORT INFORMATION
  Report Type: Report from Study
  Country: DE (occurrence: DE)
  Receive Date: 20171231
  Receipt Date: 20171231
  Transmission Date: 20180321
  Serious: Yes (Other)
  Sender: FDA-Public Use
  Company Number: DE-TEVA-2017-DE-838927

PATIENT
  Age: 76 Year
  Sex: Male
  Weight: 64 kg

DRUGS (15)
  1. BEPANTHEN [Concomitant]
     Active Substance: DEXPANTHENOL
     Indication: RHINITIS
     Route: 061
     Dates: start: 20170927
  2. DELIX [Concomitant]
     Active Substance: RAMIPRIL
     Indication: HYPERTENSION
     Dosage: 5 MILLIGRAM
     Route: 048
     Dates: start: 20170822, end: 20170920
  3. TOREM [Concomitant]
     Active Substance: TORSEMIDE
     Indication: HYPERTENSION
     Dosage: 10 MILLIGRAM
     Route: 048
     Dates: start: 20170921
  4. ABRAXANE [Suspect]
     Active Substance: PACLITAXEL
     Dosage: 100 MILLIGRAM/SQ. METER
     Route: 041
     Dates: start: 201710
  5. ABRAXANE [Suspect]
     Active Substance: PACLITAXEL
     Dosage: 100 MILLIGRAM/SQ. METER
     Route: 041
     Dates: start: 20171004
  6. LOPERAMID [Concomitant]
     Active Substance: LOPERAMIDE
     Indication: DIARRHOEA
     Route: 048
     Dates: start: 20170927, end: 20171004
  7. ABRAXANE [Suspect]
     Active Substance: PACLITAXEL
     Indication: NON-SMALL CELL LUNG CANCER
     Dosage: 100 MILLIGRAM/SQ. METER
     Route: 041
     Dates: start: 20170913
  8. ABRAXANE [Suspect]
     Active Substance: PACLITAXEL
     Dosage: 100 MILLIGRAM/SQ. METER
     Route: 041
     Dates: start: 20171020
  9. CARBOPLATIN. [Suspect]
     Active Substance: CARBOPLATIN
     Indication: NON-SMALL CELL LUNG CANCER
     Dosage: 5 MG X MIN/ML
     Route: 041
     Dates: start: 20170913
  10. METOHEXAL [Concomitant]
     Active Substance: METOPROLOL SUCCINATE
     Indication: HYPERTENSION
     Dosage: 23.75 MILLIGRAM
     Route: 048
  11. TRYASOL [Concomitant]
     Indication: COUGH
     Route: 048
  12. XARELTO [Concomitant]
     Active Substance: RIVAROXABAN
     Indication: ATRIAL FLUTTER
     Dosage: 20 MILLIGRAM
     Route: 048
  13. SALBUHEXAL [Concomitant]
     Active Substance: ALBUTEROL
     Indication: CHRONIC OBSTRUCTIVE PULMONARY DISEASE
     Route: 055
  14. ABRAXANE [Suspect]
     Active Substance: PACLITAXEL
     Dosage: 100 MILLIGRAM/SQ. METER
     Route: 041
     Dates: start: 20170920
  15. SPIOLTO RESPIMAT [Concomitant]
     Active Substance: OLODATEROL HYDROCHLORIDE\TIOTROPIUM BROMIDE MONOHYDRATE
     Indication: CHRONIC OBSTRUCTIVE PULMONARY DISEASE
     Dosage: 5 MICROGRAM
     Route: 055
     Dates: start: 20170822

REACTIONS (2)
  - Neutropenia [Recovered/Resolved]
  - Respiratory tract infection [Unknown]

NARRATIVE: CASE EVENT DATE: 2017
